FAERS Safety Report 7368603-2 (Version None)
Quarter: 2011Q1

REPORT INFORMATION
  Report Type: 
  Country: None (occurrence: None)
  Receive Date: 20110323
  Receipt Date: 20110308
  Transmission Date: 20110831
  Serious: Yes (Hospitalization)
  Sender: FDA-Public Use
  Company Number: ZA-BAYER-2011-021935

PATIENT
  Age: 31 Year
  Sex: Female

DRUGS (2)
  1. CIPROFLOXACIN [Concomitant]
     Indication: SALMONELLA SEPSIS
     Dosage: UNK
     Dates: start: 20110315
  2. NEXAVAR 200 [Suspect]
     Indication: HEPATIC NEOPLASM MALIGNANT
     Dosage: 400 MG, BID
     Route: 048
     Dates: start: 20110222

REACTIONS (3)
  - SALMONELLA SEPSIS [None]
  - FATIGUE [None]
  - PYREXIA [None]
